FAERS Safety Report 5138551-7 (Version None)
Quarter: 2006Q4

REPORT INFORMATION
  Report Type: 
  Country: None (occurrence: None)
  Receive Date: 20061030
  Receipt Date: 20060313
  Transmission Date: 20070319
  Serious: No
  Sender: FDA-Public Use
  Company Number: US-GLAXOSMITHKLINE-A0597352A

PATIENT
  Sex: Male

DRUGS (11)
  1. ADVAIR HFA [Suspect]
     Indication: ASTHMA
     Dosage: 1PUFF TWICE PER DAY
     Route: 055
     Dates: start: 20050601
  2. ASTHMA MEDICATION [Concomitant]
  3. AMARYL [Concomitant]
  4. ENAPRIL [Concomitant]
  5. TOPROL-XL [Concomitant]
  6. ALLEGRA [Concomitant]
  7. LIPITOR [Concomitant]
  8. UNKNOWN MEDICATION [Concomitant]
  9. FUROSEMIDE [Concomitant]
  10. ASPARIN [Concomitant]
  11. DIOVAN [Concomitant]

REACTIONS (1)
  - DYSPHONIA [None]
